FAERS Safety Report 19104679 (Version 2)
Quarter: 2021Q2

REPORT INFORMATION
  Report Type: Report from Study
  Country: JP (occurrence: JP)
  Receive Date: 20210407
  Receipt Date: 20210412
  Transmission Date: 20210717
  Serious: Yes (Hospitalization, Other)
  Sender: FDA-Public Use
  Company Number: JP-PFIZER INC-2018-07163

PATIENT
  Age: 66 Year
  Sex: Female
  Weight: 53.5 kg

DRUGS (3)
  1. OPDIVO [Suspect]
     Active Substance: NIVOLUMAB
     Indication: MALIGNANT MELANOMA
     Dosage: UNK
     Route: 041
     Dates: start: 20180404, end: 20180711
  2. YERVOY [Suspect]
     Active Substance: IPILIMUMAB
     Indication: MALIGNANT MELANOMA
     Dosage: 150 MG
     Route: 041
     Dates: start: 20180822, end: 20181024
  3. BRAFTOVI [Suspect]
     Active Substance: ENCORAFENIB
     Indication: MALIGNANT MELANOMA
     Dosage: 50 MG, EVERYDAY
     Route: 048
     Dates: start: 20200107, end: 20200107

REACTIONS (4)
  - Adrenal insufficiency [Unknown]
  - Hypothyroidism [Recovering/Resolving]
  - Drug eruption [Recovered/Resolved]
  - Hypophysitis [Recovering/Resolving]

NARRATIVE: CASE EVENT DATE: 20180613
